FAERS Safety Report 5674272-X (Version None)
Quarter: 2008Q2

REPORT INFORMATION
  Report Type: 
  Country: None (occurrence: None)
  Receive Date: 20080226
  Receipt Date: 20071126
  Transmission Date: 20081010
  Serious: Yes (Life-Threatening, Hospitalization)
  Sender: FDA-Public Use
  Company Number: GP-07-11-0007

PATIENT
  Age: 67 Year
  Sex: Male

DRUGS (7)
  1. NAPROXEN SODIUM [Suspect]
     Indication: BACK PAIN
     Dosage: 2 TABLETS QD PO
     Route: 048
  2. NAPROXEN SODIUM [Suspect]
     Indication: JOINT INJURY
     Dosage: 2 TABLETS QD PO
     Route: 048
  3. HYDROCODONE BITARTRATE AND ACETAMINOPHEN [Concomitant]
  4. LIPITOR [Concomitant]
  5. NORVASC [Concomitant]
  6. ASPIRIN [Concomitant]
  7. LORAZEPAM [Concomitant]

REACTIONS (1)
  - CORONARY ARTERY THROMBOSIS [None]
